FAERS Safety Report 9383368 (Version 1)
Quarter: 2013Q3

REPORT INFORMATION
  Report Type: Spontaneous
  Country: FR (occurrence: FR)
  Receive Date: 20130704
  Receipt Date: 20130704
  Transmission Date: 20140515
  Serious: Yes (Other)
  Sender: FDA-Public Use
  Company Number: FR-009507513-1306FRA012913

PATIENT
  Sex: Female
  Weight: 45 kg

DRUGS (2)
  1. SINEMET 100 MG / 10 MG COMPRIME SECABLE [Suspect]
     Dosage: 4 DF, QD
     Route: 048
     Dates: start: 201212
  2. SINEMET 100 MG / 10 MG COMPRIME SECABLE [Suspect]
     Dosage: 0.5 DF, QID

REACTIONS (2)
  - Paralysis [Unknown]
  - Somnolence [Recovering/Resolving]
